FAERS Safety Report 12996297 (Version 1)
Quarter: 2016Q4

REPORT INFORMATION
  Report Type: Spontaneous
  Country: FR (occurrence: FR)
  Receive Date: 20161203
  Receipt Date: 20161203
  Transmission Date: 20170207
  Serious: Yes (Hospitalization)
  Sender: FDA-Public Use
  Company Number: FR-AUROBINDO-AUR-APL-2016-14940

PATIENT
  Age: 59 Year
  Sex: Male

DRUGS (2)
  1. PANTOPRAZOLE GASTRO-RESISTANT TABLET 20MG [Suspect]
     Active Substance: PANTOPRAZOLE SODIUM
     Indication: GASTRODUODENAL ULCER
     Dosage: 20 MG, ONCE A DAY
     Route: 048
     Dates: start: 20161024, end: 20161025
  2. INEXIUM                            /01479302/ [Suspect]
     Active Substance: ESOMEPRAZOLE MAGNESIUM
     Indication: GASTRODUODENAL ULCER
     Dosage: 20 MG, ONCE A DAY
     Route: 048
     Dates: end: 20161124

REACTIONS (1)
  - Inappropriate antidiuretic hormone secretion [Recovered/Resolved]

NARRATIVE: CASE EVENT DATE: 20161023
